FAERS Safety Report 11138077 (Version 1)
Quarter: 2015Q2

REPORT INFORMATION
  Report Type: Report from Study
  Country: AR (occurrence: AR)
  Receive Date: 20150526
  Receipt Date: 20150526
  Transmission Date: 20150821
  Serious: Yes (Other)
  Sender: FDA-Public Use
  Company Number: PHHY2015AR052122

PATIENT
  Age: 75 Year
  Sex: Female

DRUGS (2)
  1. DIOVAN [Suspect]
     Active Substance: VALSARTAN
     Indication: HYPERTENSION
     Dosage: 80 MG, QD
     Route: 048
  2. DIOVAN IC ` [Suspect]
     Active Substance: VALSARTAN
     Indication: HYPERTENSION
     Dosage: 40 MG, QD
     Route: 048

REACTIONS (9)
  - Osteoarthritis [Recovering/Resolving]
  - Nervousness [Recovering/Resolving]
  - Malaise [Recovering/Resolving]
  - Bone pain [Unknown]
  - Pain in extremity [Recovering/Resolving]
  - Osteoporosis [Recovering/Resolving]
  - Chronic obstructive pulmonary disease [Recovering/Resolving]
  - Musculoskeletal pain [Recovering/Resolving]
  - Influenza [Recovering/Resolving]

NARRATIVE: CASE EVENT DATE: 201504
